FAERS Safety Report 6741582-4 (Version None)
Quarter: 2010Q2

REPORT INFORMATION
  Report Type: 
  Country: None (occurrence: None)
  Receive Date: 20100526
  Receipt Date: 20100525
  Transmission Date: 20101027
  Serious: Yes (Death)
  Sender: FDA-Public Use
  Company Number: CA-ABBOTT-10P-028-0644903-00

PATIENT
  Sex: Male
  Weight: 60.836 kg

DRUGS (1)
  1. LUPRON DEPOT [Suspect]
     Indication: PROSTATE CANCER
     Dates: start: 20100222

REACTIONS (1)
  - CARDIAC ARREST [None]
